FAERS Safety Report 17139414 (Version 1)
Quarter: 2019Q4

REPORT INFORMATION
  Report Type: Spontaneous
  Country: US (occurrence: US)
  Receive Date: 20191210
  Receipt Date: 20191210
  Transmission Date: 20200122
  Serious: No
  Sender: FDA-Public Use
  Company Number: None

PATIENT
  Age: 48 Year
  Sex: Female

DRUGS (2)
  1. VITAMIN D3 [Concomitant]
     Active Substance: CHOLECALCIFEROL
  2. AXICABTAGENE CILOLEUCEL [Suspect]
     Active Substance: AXICABTAGENE CILOLEUCEL

REACTIONS (8)
  - Neurotoxicity [None]
  - Febrile neutropenia [None]
  - Chills [None]
  - Lymphocyte adoptive therapy [None]
  - Cytokine release syndrome [None]
  - Ocular discomfort [None]
  - CAR T-cell-related encephalopathy syndrome [None]
  - Ear pain [None]

NARRATIVE: CASE EVENT DATE: 20190710
